FAERS Safety Report 22147534 (Version 1)
Quarter: 2023Q1

REPORT INFORMATION
  Report Type: Spontaneous
  Country: US (occurrence: None)
  Receive Date: 20230328
  Receipt Date: 20230328
  Transmission Date: 20230418
  Serious: Yes (Life-Threatening)
  Sender: FDA-Public Use
  Company Number: None

PATIENT
  Age: 37 Year
  Sex: Male
  Weight: 88 kg

DRUGS (1)
  1. FINASTERIDE\MINOXIDIL [Suspect]
     Active Substance: FINASTERIDE\MINOXIDIL
     Indication: Alopecia
     Dosage: OTHER QUANTITY : 100 DROP(S);?
     Route: 061
     Dates: start: 20220909, end: 20221015

REACTIONS (5)
  - Hypersensitivity [None]
  - Suicidal ideation [None]
  - Endocrine disorder [None]
  - Blood testosterone decreased [None]
  - Hypothyroidism [None]

NARRATIVE: CASE EVENT DATE: 20230210
